FAERS Safety Report 23835953 (Version 6)
Quarter: 2024Q4

REPORT INFORMATION
  Report Type: Report from Study
  Country: US (occurrence: US)
  Receive Date: 20240509
  Receipt Date: 20241229
  Transmission Date: 20250114
  Serious: Yes (Other)
  Sender: INSMED
  Company Number: US-INSMED, INC.-2024-01714-US

PATIENT
  Sex: Female

DRUGS (2)
  1. ARIKAYCE [Suspect]
     Active Substance: AMIKACIN
     Indication: Mycobacterium avium complex infection
     Dosage: 590 MILLIGRAM, QD
     Route: 055
     Dates: start: 202404, end: 20240422
  2. OMEPRAZOLE [Concomitant]
     Active Substance: OMEPRAZOLE
     Indication: Product used for unknown indication
     Dosage: UNK, UNK
     Route: 065
     Dates: end: 202404

REACTIONS (16)
  - Mycobacterium avium complex infection [Unknown]
  - Abdominal pain [Unknown]
  - Pneumonia [Unknown]
  - Vomiting [Unknown]
  - Diarrhoea [Unknown]
  - Colostomy [Unknown]
  - Gastrooesophageal reflux disease [Not Recovered/Not Resolved]
  - COVID-19 [Unknown]
  - Sinus disorder [Recovering/Resolving]
  - Abdominal discomfort [Unknown]
  - Oropharyngeal pain [Unknown]
  - Dysphonia [Unknown]
  - Adverse drug reaction [Unknown]
  - Illness [Recovered/Resolved]
  - Unevaluable event [Unknown]
  - Therapy interrupted [Unknown]

NARRATIVE: CASE EVENT DATE: 20240101
